FAERS Safety Report 15799751 (Version 1)
Quarter: 2019Q1

REPORT INFORMATION
  Report Type: Report from Study
  Country: IN (occurrence: IN)
  Receive Date: 20190108
  Receipt Date: 20190108
  Transmission Date: 20190417
  Serious: Yes (Life-Threatening, Hospitalization)
  Sender: FDA-Public Use
  Company Number: IN-BIOGEN-2019BI00677913

PATIENT
  Age: 27 Year
  Sex: Female

DRUGS (2)
  1. TYRONOR [Concomitant]
     Indication: BLOOD THYROID STIMULATING HORMONE
     Dosage: SINCE 15 DAYS
     Route: 065
  2. TECFIDERA [Suspect]
     Active Substance: DIMETHYL FUMARATE
     Indication: MULTIPLE SCLEROSIS
     Dosage: STARTING DOSE
     Route: 048
     Dates: start: 20180505

REACTIONS (6)
  - Bradycardia [Recovered/Resolved]
  - Gastric disorder [Unknown]
  - Loss of consciousness [Unknown]
  - Paralysis [Unknown]
  - Underdose [Unknown]
  - Fall [Recovered/Resolved]

NARRATIVE: CASE EVENT DATE: 20181205
